FAERS Safety Report 16468879 (Version 1)
Quarter: 2019Q3

REPORT INFORMATION
  Report Type: Spontaneous
  Country: US (occurrence: US)
  Receive Date: 20190621
  Receipt Date: 20190621
  Transmission Date: 20191004
  Serious: Yes (Other)
  Sender: FDA-Public Use
  Company Number: None

PATIENT
  Age: 87 Year
  Sex: Male
  Weight: 97 kg

DRUGS (10)
  1. DILTIAZEM XR 120MG [Concomitant]
  2. METFORMIN 1000MG TWICE DAILY [Concomitant]
  3. RIVAROXABAN 20MG DAILY [Concomitant]
  4. FINASTERIDE 5MG DAILY [Concomitant]
  5. METOPROLOL SUCCINATE 100MG DAILY [Concomitant]
  6. PRIMIDONE 50MG DAILY [Concomitant]
  7. ATORVASTATIN 40MG DAILY [Concomitant]
  8. TAMSULOSIN 0.4MG DAILY [Concomitant]
  9. MIRABEGRON 25MG DAILY [Concomitant]
  10. SULFAMETHOXAZOLE-TRIMETHOPRIM [Suspect]
     Active Substance: SULFAMETHOXAZOLE\TRIMETHOPRIM
     Indication: URINARY TRACT INFECTION
     Route: 048
     Dates: start: 20190430, end: 20190514

REACTIONS (3)
  - Drug hypersensitivity [None]
  - Rash [None]
  - Fall [None]

NARRATIVE: CASE EVENT DATE: 20190521
